FAERS Safety Report 23269897 (Version 2)
Quarter: 2024Q1

REPORT INFORMATION
  Report Type: Report from Study
  Country: IT (occurrence: IT)
  Receive Date: 20231207
  Receipt Date: 20240302
  Transmission Date: 20240410
  Serious: Yes (Other)
  Sender: FDA-Public Use
  Company Number: None

PATIENT
  Age: 68 Year
  Sex: Male

DRUGS (7)
  1. DOCETAXEL [Suspect]
     Active Substance: DOCETAXEL\DOCETAXEL ANHYDROUS
     Indication: Prostate cancer
     Dosage: SC. SEP-2024
     Dates: start: 20230906, end: 20230927
  2. DAROLUTAMIDE [Suspect]
     Active Substance: DAROLUTAMIDE
     Indication: Prostate cancer
     Dosage: SC. NOV-2025
     Dates: start: 20230906, end: 20231011
  3. ENANTONE LP [Concomitant]
     Active Substance: LEUPROLIDE ACETATE
     Indication: Prostate cancer
  4. TAMSULOSIN [Concomitant]
     Active Substance: TAMSULOSIN
  5. BISOPROLOL [Concomitant]
     Active Substance: BISOPROLOL\BISOPROLOL FUMARATE
     Indication: Hypertension
  6. PREDNISONE [Concomitant]
     Active Substance: PREDNISONE
     Indication: Prostate cancer
  7. FENOFIBRATE [Concomitant]
     Active Substance: FENOFIBRATE
     Indication: Type V hyperlipidaemia

REACTIONS (4)
  - Pyoderma [Recovered/Resolved]
  - Rash papular [Recovered/Resolved]
  - Pruritus [Recovered/Resolved]
  - Rash [Recovering/Resolving]

NARRATIVE: CASE EVENT DATE: 20231009
